FAERS Safety Report 13647008 (Version 1)
Quarter: 2017Q2

REPORT INFORMATION
  Report Type: Spontaneous
  Country: US (occurrence: US)
  Receive Date: 20170613
  Receipt Date: 20170613
  Transmission Date: 20170830
  Serious: Yes (Other)
  Sender: FDA-Public Use
  Company Number: US-JNJCP-30000390121

PATIENT
  Age: 20 Year
  Sex: Female

DRUGS (1)
  1. JOHNSONS PRODUCTS [Suspect]
     Active Substance: UNSPECIFIED INGREDIENT
     Indication: PRODUCT USED FOR UNKNOWN INDICATION
     Route: 061

REACTIONS (2)
  - Lung neoplasm malignant [Not Recovered/Not Resolved]
  - Ovarian cancer stage IV [Not Recovered/Not Resolved]

NARRATIVE: CASE EVENT DATE: 1996
